FAERS Safety Report 5080485-0 (Version None)
Quarter: 2006Q3

REPORT INFORMATION
  Report Type: 
  Country: None (occurrence: None)
  Receive Date: 20060815
  Receipt Date: 20060721
  Transmission Date: 20061208
  Serious: Yes (Hospitalization)
  Sender: FDA-Public Use
  Company Number: US-AMGEN-US187222

PATIENT
  Sex: Female
  Weight: 111.2 kg

DRUGS (11)
  1. ENBREL [Suspect]
     Indication: RHEUMATOID ARTHRITIS
     Route: 065
     Dates: start: 19981202
  2. FOSAMAX [Concomitant]
  3. ASCORBIC ACID [Concomitant]
  4. CITRACAL [Concomitant]
  5. FENTANYL [Concomitant]
     Route: 061
  6. T4 [Concomitant]
  7. CYTOTEC [Concomitant]
  8. PREVACID [Concomitant]
  9. NEURONTIN [Concomitant]
  10. GLUCOPHAGE [Concomitant]
  11. AMARYL [Concomitant]

REACTIONS (6)
  - ANAEMIA [None]
  - CONDITION AGGRAVATED [None]
  - GASTROINTESTINAL HAEMORRHAGE [None]
  - HAEMATOCHEZIA [None]
  - INJECTION SITE DISCOMFORT [None]
  - MELAENA [None]
